FAERS Safety Report 17994824 (Version 3)
Quarter: 2021Q1

REPORT INFORMATION
  Report Type: Other
  Country: FR (occurrence: FR)
  Receive Date: 20200708
  Receipt Date: 20210302
  Transmission Date: 20210419
  Serious: Yes (Hospitalization, Other)
  Sender: FDA-Public Use
  Company Number: FR-ROCHE-2600642

PATIENT
  Age: 58 Year
  Sex: Male
  Weight: 43.5 kg

DRUGS (3)
  1. BENDAMUSTINE [Suspect]
     Active Substance: BENDAMUSTINE
     Indication: DIFFUSE LARGE B-CELL LYMPHOMA
     Dosage: CYCLE 2; 20/MAR/2020, CYCLE 3: 14/APR/2020, CYCLE 4: 19/MAY/2020, CYCLE 5:  16/JUN/2020
     Route: 042
  2. RITUXIMAB. [Suspect]
     Active Substance: RITUXIMAB
     Indication: DIFFUSE LARGE B-CELL LYMPHOMA
     Dosage: CYCLE 2; 20/MAR/2020, CYCLE 3: 14/APR/2020, CYCLE 4: 19/MAY/2020,  CYCLE 5: 16/JUN/2020
     Route: 041
     Dates: start: 20200228
  3. POLATUZUMAB VEDOTIN. [Suspect]
     Active Substance: POLATUZUMAB VEDOTIN
     Indication: DIFFUSE LARGE B-CELL LYMPHOMA
     Dosage: CYCLE 2 ON 20/MAR/2020, CYCLE 3; 14/APR/2020, CYCLE 4: 19/MAY/2020,  CYCLE 5; 16/JUN/2020,
     Route: 042
     Dates: start: 20200228

REACTIONS (6)
  - Infection [Recovered/Resolved]
  - Thrombocytopenia [Not Recovered/Not Resolved]
  - Neutropenia [Recovered/Resolved]
  - Anaemia [Not Recovered/Not Resolved]
  - Haemorrhoids [Recovered/Resolved with Sequelae]
  - Rectal haemorrhage [Recovered/Resolved with Sequelae]

NARRATIVE: CASE EVENT DATE: 20200314
